FAERS Safety Report 9891578 (Version 1)
Quarter: 2014Q1

REPORT INFORMATION
  Report Type: Spontaneous
  Country: FR (occurrence: FR)
  Receive Date: 20140212
  Receipt Date: 20140212
  Transmission Date: 20141002
  Serious: Yes (Other)
  Sender: FDA-Public Use
  Company Number: PHHY2014FR015157

PATIENT
  Age: 62 Year
  Sex: Male

DRUGS (4)
  1. EXFORGE [Suspect]
     Indication: HYPERTENSION
     Dosage: 1 DF (160MG VALS, 10 MG AMLO), UNK
     Route: 048
     Dates: start: 201302
  2. FUROSEMIDE [Suspect]
     Dosage: UNK UKN, UNK
     Dates: start: 201302, end: 201303
  3. ALLOPURINOL [Concomitant]
     Indication: GOUT
     Dosage: UNK
     Dates: end: 201303
  4. ALLOPURINOL [Concomitant]
     Dosage: UNK

REACTIONS (3)
  - Dermatitis bullous [Recovered/Resolved]
  - Acne [Recovered/Resolved]
  - Pruritus [Not Recovered/Not Resolved]
